FAERS Safety Report 16009045 (Version 3)
Quarter: 2019Q3

REPORT INFORMATION
  Report Type: Spontaneous
  Country: FR (occurrence: FR)
  Receive Date: 20190225
  Receipt Date: 20190807
  Transmission Date: 20191004
  Serious: Yes (Hospitalization, Other)
  Sender: FDA-Public Use
  Company Number: FR-BRISTOL-MYERS SQUIBB COMPANY-BMS-2019-017402

PATIENT
  Age: 49 Year
  Sex: Male
  Weight: 85 kg

DRUGS (1)
  1. OPDIVO [Suspect]
     Active Substance: NIVOLUMAB
     Indication: MALIGNANT MELANOMA STAGE IV
     Dosage: 480 MG, 1 MONTH
     Route: 042
     Dates: start: 20180912, end: 20190115

REACTIONS (2)
  - Arthralgia [Recovered/Resolved with Sequelae]
  - Rheumatic disorder [Recovered/Resolved with Sequelae]

NARRATIVE: CASE EVENT DATE: 20181224
